FAERS Safety Report 5629716-6 (Version None)
Quarter: 2008Q1

REPORT INFORMATION
  Report Type: 
  Country: None (occurrence: None)
  Receive Date: 20080218
  Receipt Date: 20080204
  Transmission Date: 20080703
  Serious: Yes (Hospitalization)
  Sender: FDA-Public Use
  Company Number: LB-MERCK-0802USA00645

PATIENT
  Age: 82 Year
  Sex: Male

DRUGS (12)
  1. COSOPT [Suspect]
     Route: 047
  2. VASTAREL [Concomitant]
     Route: 065
  3. ZYLORIC [Concomitant]
     Route: 065
  4. ALPHAGAN [Concomitant]
     Route: 065
  5. EPREX [Concomitant]
     Route: 065
  6. LUMIGAN [Concomitant]
     Route: 065
  7. LANOXIN [Concomitant]
     Route: 065
  8. PARIET [Concomitant]
     Route: 065
  9. CORDARONE [Concomitant]
     Route: 065
  10. LASIX [Concomitant]
     Route: 065
  11. LIPONORM (ATORVASTATIN CALCIUM) [Concomitant]
     Route: 065
  12. ALDACTONE [Concomitant]
     Route: 065

REACTIONS (1)
  - ACUTE MYOCARDIAL INFARCTION [None]
